FAERS Safety Report 7740963-X (Version None)
Quarter: 2011Q3

REPORT INFORMATION
  Report Type: 
  Country: None (occurrence: None)
  Receive Date: 20110909
  Receipt Date: 20110906
  Transmission Date: 20111222
  Serious: Yes (Other)
  Sender: FDA-Public Use
  Company Number: US-PFIZER INC-2011209275

PATIENT
  Sex: Female

DRUGS (2)
  1. CELEBREX [Suspect]
     Indication: ARTHRITIS
     Dosage: 200 MG, UNK
  2. TOPROL-XL [Suspect]
     Indication: CARDIAC DISORDER
     Dosage: 50 MG, UNK

REACTIONS (3)
  - HEART RATE INCREASED [None]
  - KNEE OPERATION [None]
  - MALAISE [None]
